FAERS Safety Report 15103505 (Version 1)
Quarter: 2018Q3

REPORT INFORMATION
  Report Type: Spontaneous
  Country: US (occurrence: US)
  Receive Date: 20180703
  Receipt Date: 20180703
  Transmission Date: 20181010
  Serious: Yes (Death, Other)
  Sender: FDA-Public Use
  Company Number: US-TEVA-2018-US-918922

PATIENT
  Age: 53 Year
  Sex: Male

DRUGS (8)
  1. DOCETAXEL. [Concomitant]
     Active Substance: DOCETAXEL
     Indication: PALLIATIVE CARE
     Route: 065
  2. CISPLATIN. [Suspect]
     Active Substance: CISPLATIN
     Indication: NEUROENDOCRINE CARCINOMA
  3. M6620 [Suspect]
     Active Substance: BERZOSERTIB
     Indication: NEUROENDOCRINE CARCINOMA
  4. ETOPOSIDE. [Concomitant]
     Active Substance: ETOPOSIDE
     Indication: PALLIATIVE CARE
     Route: 065
  5. CISPLATIN. [Suspect]
     Active Substance: CISPLATIN
     Indication: PROSTATE CANCER METASTATIC
     Dosage: 75 MG/M2 ON DAY 1 EVERY 21 DAYS
     Route: 065
     Dates: start: 201510, end: 2016
  6. CARBOPLATIN. [Concomitant]
     Active Substance: CARBOPLATIN
     Indication: PALLIATIVE CARE
     Route: 065
  7. PREDNISONE. [Concomitant]
     Active Substance: PREDNISONE
     Indication: PALLIATIVE CARE
     Route: 065
  8. M6620 [Suspect]
     Active Substance: BERZOSERTIB
     Indication: PROSTATE CANCER METASTATIC
     Dosage: 140 MG/M2 ON DAYS 2 AND 9 EVERY 21 DAYS
     Route: 065
     Dates: start: 201510

REACTIONS (3)
  - Neuropathy peripheral [Unknown]
  - Hypersensitivity [Unknown]
  - Fatigue [Unknown]
